FAERS Safety Report 15598326 (Version 2)
Quarter: 2018Q4

REPORT INFORMATION
  Report Type: Spontaneous
  Country: DE (occurrence: DE)
  Receive Date: 20181108
  Receipt Date: 20181204
  Transmission Date: 20190205
  Serious: Yes (Other)
  Sender: FDA-Public Use
  Company Number: DE-SA-2018SA302360

PATIENT
  Age: 36 Year
  Sex: Male

DRUGS (5)
  1. LEMTRADA [Suspect]
     Active Substance: ALEMTUZUMAB
     Dosage: UNK UNK, UNK
     Route: 041
     Dates: start: 20140113
  2. SATIVEX [Concomitant]
     Active Substance: NABIXIMOLS
     Indication: MULTIPLE SCLEROSIS
     Dosage: 5-7 STROKES (SPRAY)
     Route: 065
     Dates: start: 20171106
  3. LEMTRADA [Suspect]
     Active Substance: ALEMTUZUMAB
     Indication: MULTIPLE SCLEROSIS
     Dosage: UNK UNK, UNK
     Route: 041
     Dates: start: 201505, end: 201505
  4. BACLOFEN. [Concomitant]
     Active Substance: BACLOFEN
     Indication: MUSCLE SPASTICITY
     Dosage: 25 MG, TID
     Route: 048
     Dates: start: 20170330
  5. VENLAFAXINE [Concomitant]
     Active Substance: VENLAFAXINE HYDROCHLORIDE
     Dosage: UNK, UNK
     Route: 065

REACTIONS (5)
  - Muscle spasticity [Recovering/Resolving]
  - Polyneuropathy [Unknown]
  - Paraesthesia [Recovering/Resolving]
  - Depressed mood [Unknown]
  - Condition aggravated [Recovering/Resolving]

NARRATIVE: CASE EVENT DATE: 2018
